FAERS Safety Report 14345049 (Version 2)
Quarter: 2018Q1

REPORT INFORMATION
  Report Type: Spontaneous
  Country: CA (occurrence: CA)
  Receive Date: 20180103
  Receipt Date: 20180221
  Transmission Date: 20180509
  Serious: Yes (Other)
  Sender: FDA-Public Use
  Company Number: CA-CONCORDIA PHARMACEUTICALS INC.-GSH201801-000013

PATIENT
  Sex: Female

DRUGS (6)
  1. XELJANZ [Concomitant]
     Active Substance: TOFACITINIB CITRATE
     Dates: start: 20171128
  2. LEFLUNOMIDE. [Suspect]
     Active Substance: LEFLUNOMIDE
     Indication: RHEUMATOID ARTHRITIS
     Route: 048
     Dates: start: 201507
  3. PREDNISONE. [Concomitant]
     Active Substance: PREDNISONE
  4. PLAQUENIL [Suspect]
     Active Substance: HYDROXYCHLOROQUINE SULFATE
     Indication: PRODUCT USED FOR UNKNOWN INDICATION
     Route: 048
  5. TUMS [Concomitant]
     Active Substance: CALCIUM CARBONATE
  6. SYNTHROID [Concomitant]
     Active Substance: LEVOTHYROXINE SODIUM

REACTIONS (9)
  - Musculoskeletal pain [Unknown]
  - Rheumatoid arthritis [Recovering/Resolving]
  - Arthralgia [Unknown]
  - Urticaria [Unknown]
  - Asthenia [Unknown]
  - Swelling [Unknown]
  - Musculoskeletal stiffness [Unknown]
  - Joint swelling [Unknown]
  - Pain [Unknown]
